FAERS Safety Report 11390156 (Version 1)
Quarter: 2015Q3

REPORT INFORMATION
  Report Type: Spontaneous
  Country: US (occurrence: None)
  Receive Date: 20150814
  Receipt Date: 20150814
  Transmission Date: 20151125
  Serious: Yes (Other)
  Sender: FDA-Public Use
  Company Number: None

PATIENT
  Sex: Male
  Weight: 88.91 kg

DRUGS (4)
  1. ARIPRAZOLE [Suspect]
     Active Substance: ARIPIPRAZOLE
     Indication: AUTISM
     Route: 048
  2. ARIPRAZOLE [Suspect]
     Active Substance: ARIPIPRAZOLE
     Indication: AGITATION
     Route: 048
  3. ARIPRAZOLE [Suspect]
     Active Substance: ARIPIPRAZOLE
     Indication: IRRITABILITY
     Route: 048
  4. ARIPRAZOLE [Suspect]
     Active Substance: ARIPIPRAZOLE
     Indication: AGGRESSION
     Route: 048

REACTIONS (4)
  - Product substitution issue [None]
  - Educational problem [None]
  - Aggression [None]
  - Unevaluable event [None]
